FAERS Safety Report 4547985-0 (Version None)
Quarter: 2004Q4

REPORT INFORMATION
  Report Type: 
  Country: None (occurrence: None)
  Receive Date: 20041227
  Receipt Date: 20041022
  Transmission Date: 20050328
  Serious: No
  Sender: FDA-Public Use
  Company Number: 04P-163-0278429-00

PATIENT
  Age: 55 Year
  Sex: Female
  Weight: 74.8435 kg

DRUGS (12)
  1. HUMIRA [Suspect]
     Indication: RHEUMATOID ARTHRITIS
     Dosage: 40 MG, 1 IN 2 WK, SUBCUTANEOUS
     Route: 058
     Dates: start: 20041007
  2. VALPROATE SODIUM [Concomitant]
  3. RISPERIDONE [Concomitant]
  4. QUINAPRIL HYDROCHLORIDE [Concomitant]
  5. ATORVASTATIN [Concomitant]
  6. HYDROXYCHLOROQUINE PHOSPHATE [Concomitant]
  7. SULFASALAZINE [Concomitant]
  8. LEFLUNOMIDE [Concomitant]
  9. CELECOXIB [Concomitant]
  10. OXYBUTYNIN HYDROCHLORIDE [Concomitant]
  11. GLIBENCLAMIDE [Concomitant]
  12. MULTI-VITAMINS [Concomitant]

REACTIONS (1)
  - INJECTION SITE ERYTHEMA [None]
